FAERS Safety Report 10049693 (Version 2)
Quarter: 2014Q3

REPORT INFORMATION
  Report Type: Report from Study
  Country: CL (occurrence: CL)
  Receive Date: 20140401
  Receipt Date: 20140708
  Transmission Date: 20150326
  Serious: Yes (Death, Hospitalization)
  Sender: FDA-Public Use
  Company Number: PHHY2014CL038638

PATIENT
  Age: 60 Year
  Sex: Male
  Weight: 65 kg

DRUGS (2)
  1. GLIVEC [Suspect]
     Active Substance: IMATINIB MESYLATE
     Indication: ACUTE LYMPHOCYTIC LEUKAEMIA
     Dosage: 600 MG, UNK
  2. GLIVEC [Suspect]
     Active Substance: IMATINIB MESYLATE
     Indication: CHROMOSOME ANALYSIS ABNORMAL

REACTIONS (7)
  - Pancytopenia [Fatal]
  - Haemodynamic instability [Fatal]
  - Pyrexia [Fatal]
  - Vomiting [Fatal]
  - Bacterial infection [Fatal]
  - Septic shock [Fatal]
  - Abdominal pain [Fatal]

NARRATIVE: CASE EVENT DATE: 20140320
